FAERS Safety Report 6979758-3 (Version None)
Quarter: 2010Q3

REPORT INFORMATION
  Report Type: 
  Country: None (occurrence: None)
  Receive Date: 20100914
  Receipt Date: 20100907
  Transmission Date: 20110219
  Serious: Yes (Other)
  Sender: FDA-Public Use
  Company Number: US-BIOGENIDEC-2010BI022776

PATIENT
  Age: 32 Year
  Sex: Female

DRUGS (9)
  1. TYSABRI [Suspect]
     Indication: MULTIPLE SCLEROSIS
     Route: 042
     Dates: start: 20070927, end: 20091009
  2. ALLEGRA [Concomitant]
     Dates: end: 20091001
  3. NASONEX [Concomitant]
     Dates: end: 20091001
  4. LOVAZA [Concomitant]
  5. PROBIOTIC [Concomitant]
  6. PRENATAL VITAMINS [Concomitant]
  7. CLARITIN [Concomitant]
  8. CALCIUM [Concomitant]
  9. VITAMIN D [Concomitant]

REACTIONS (2)
  - CAESAREAN SECTION [None]
  - PREGNANCY [None]
